FAERS Safety Report 7864965-8 (Version None)
Quarter: 2011Q4

REPORT INFORMATION
  Report Type: 
  Country: None (occurrence: None)
  Receive Date: 20111028
  Receipt Date: 20111020
  Transmission Date: 20120403
  Serious: Yes (Other)
  Sender: FDA-Public Use
  Company Number: BR-BAYER-2011-101479

PATIENT
  Age: 39 Year
  Sex: Female

DRUGS (1)
  1. DROSPIRENONE AND ETHINYL ESTRADIOL [Suspect]
     Indication: PRODUCT USED FOR UNKNOWN INDICATION
     Dosage: UNK UNK, CONT
     Route: 048

REACTIONS (4)
  - TUMOUR MARKER INCREASED [None]
  - DYSMENORRHOEA [None]
  - MENORRHAGIA [None]
  - UTERINE ENLARGEMENT [None]
